FAERS Safety Report 6240795-8 (Version None)
Quarter: 2009Q2

REPORT INFORMATION
  Report Type: 
  Country: None (occurrence: None)
  Receive Date: 20090623
  Receipt Date: 20090615
  Transmission Date: 20091009
  Serious: Yes (Hospitalization, Other)
  Sender: FDA-Public Use
  Company Number: JP-WYE-H09623809

PATIENT
  Sex: Male

DRUGS (1)
  1. ZOSYN [Suspect]
     Indication: PNEUMONIA ASPIRATION
     Route: 041
     Dates: start: 20090520, end: 20090524

REACTIONS (3)
  - DEPRESSED LEVEL OF CONSCIOUSNESS [None]
  - HYPERNATRAEMIA [None]
  - SEPSIS [None]
